FAERS Safety Report 8226148-1 (Version None)
Quarter: 2012Q1

REPORT INFORMATION
  Report Type: 
  Country: None (occurrence: None)
  Receive Date: 20120319
  Receipt Date: 20120309
  Transmission Date: 20120608
  Serious: Yes (Hospitalization)
  Sender: FDA-Public Use
  Company Number: LTI2012A00075

PATIENT
  Age: 50 Year
  Sex: Female

DRUGS (1)
  1. LANSOPRAZOLE [Suspect]
     Indication: BARRETT'S OESOPHAGUS
     Dosage: 60 MG (30 MG, 2 IN 1 D) ORAL
     Route: 048
     Dates: start: 20080506, end: 20080514

REACTIONS (1)
  - CYTOLYTIC HEPATITIS [None]
